FAERS Safety Report 21231373 (Version 1)
Quarter: 2022Q3

REPORT INFORMATION
  Report Type: Spontaneous
  Country: FR (occurrence: FR)
  Receive Date: 20220819
  Receipt Date: 20220819
  Transmission Date: 20221027
  Serious: No
  Sender: FDA-Public Use
  Company Number: FR-BAXTER-2022BAX017330

PATIENT
  Age: 30 Year
  Sex: Female
  Weight: 66 kg

DRUGS (1)
  1. WATER FOR INJECTION [Suspect]
     Active Substance: WATER
     Indication: Wrong product administered
     Route: 008
     Dates: start: 20220722, end: 20220722

REACTIONS (2)
  - Back pain [Recovered/Resolved]
  - Wrong product administered [Recovered/Resolved]

NARRATIVE: CASE EVENT DATE: 20220722
